FAERS Safety Report 24107645 (Version 1)
Quarter: 2024Q3

REPORT INFORMATION
  Report Type: Spontaneous
  Country: US (occurrence: US)
  Receive Date: 20240718
  Receipt Date: 20240718
  Transmission Date: 20241017
  Serious: No
  Sender: BIOGEN
  Company Number: US-BIOGEN-2024BI01271585

PATIENT
  Age: 57 Year
  Sex: Female

DRUGS (1)
  1. VUMERITY [Suspect]
     Active Substance: DIROXIMEL FUMARATE
     Indication: Multiple sclerosis
     Route: 050
     Dates: start: 20230505, end: 20240622

REACTIONS (7)
  - Contusion [Not Recovered/Not Resolved]
  - Limb injury [Unknown]
  - Multiple sclerosis [Unknown]
  - Immunosuppression [Unknown]
  - Gastrointestinal disorder [Unknown]
  - Accident [Recovered/Resolved]
  - Lymphocyte count decreased [Unknown]

NARRATIVE: CASE EVENT DATE: 20240611
